FAERS Safety Report 8820083 (Version 2)
Quarter: 2013Q4

REPORT INFORMATION
  Report Type: Spontaneous
  Country: CA (occurrence: CA)
  Receive Date: 20121001
  Receipt Date: 20131031
  Transmission Date: 20140711
  Serious: Yes (Hospitalization, Other)
  Sender: FDA-Public Use
  Company Number: CA-009507513-1209CAN011556

PATIENT
  Age: 50 Year
  Sex: Female

DRUGS (5)
  1. INTRON A [Suspect]
     Indication: METASTATIC MALIGNANT MELANOMA
     Dosage: 32 MILLION IU, QD
     Route: 041
     Dates: start: 20050411
  2. TRAZODONE HYDROCHLORIDE [Concomitant]
  3. FELODIPINE [Concomitant]
  4. FIORINAL (ASPIRIN (+) BUTALBITAL (+) CAFFEINE) [Concomitant]
  5. ZOPICLONE [Concomitant]

REACTIONS (2)
  - Cardiac tamponade [Recovered/Resolved]
  - Pericardial effusion [Recovered/Resolved]
